FAERS Safety Report 8117352-1 (Version None)
Quarter: 2012Q1

REPORT INFORMATION
  Report Type: 
  Country: None (occurrence: None)
  Receive Date: 20120206
  Receipt Date: 20120126
  Transmission Date: 20120608
  Serious: Yes (Hospitalization, Congenital Anomaly)
  Sender: FDA-Public Use
  Company Number: DE-ASTRAZENECA-2012SE05523

PATIENT
  Age: 0 Year
  Sex: Male
  Weight: 4 kg

DRUGS (4)
  1. XIPAMID [Suspect]
     Indication: OEDEMA
     Dosage: 10 MG/D FROM JANUARY TO APRIL 2011
     Route: 064
     Dates: start: 20110115, end: 20110415
  2. GYNVITAL [Concomitant]
     Indication: VITAMIN SUPPLEMENTATION
     Dosage: 0.4[MG/D
     Route: 064
     Dates: start: 20110505, end: 20110505
  3. AVELOX [Concomitant]
     Indication: NASOPHARYNGITIS
     Route: 064
     Dates: start: 20110201, end: 20110228
  4. RAMIPRIL [Suspect]
     Indication: HYPERTENSION
     Dosage: 2.5 MG/D
     Route: 064
     Dates: start: 20101228, end: 20110315

REACTIONS (1)
  - FALLOT'S TETRALOGY [None]
